FAERS Safety Report 5023746-3 (Version None)
Quarter: 2006Q2

REPORT INFORMATION
  Report Type: 
  Country: None (occurrence: None)
  Receive Date: 20060428
  Receipt Date: 20060214
  Transmission Date: 20061013
  Serious: Yes (Other)
  Sender: FDA-Public Use
  Company Number: US-2006-001449

PATIENT
  Age: 80 Year
  Sex: Female
  Weight: 71 kg

DRUGS (13)
  1. LEUKINE [Suspect]
     Indication: CHEMOTHERAPY CYTOKINE PROPHYLAXIS
     Dosage: 500 UG, SUBCUTANEOUS
     Route: 058
     Dates: start: 20060124, end: 20060124
  2. TAXOL [Concomitant]
  3. CARBOPLATIN [Concomitant]
  4. AVASTIN [Concomitant]
  5. COUMADIN [Concomitant]
  6. EFFEXOR XR [Concomitant]
  7. TOPROL-XL [Concomitant]
  8. LISINOPRIL [Concomitant]
  9. POTASSIUM CHLORIDE [Concomitant]
  10. PREVACID [Concomitant]
  11. TYLENOL WITH CODEINE (CODEINE PHOSPHATE) [Concomitant]
  12. CENTRUM (MINERALS NOS, VITAMINS NOS) [Concomitant]
  13. ZINC (ZINC) [Concomitant]

REACTIONS (5)
  - DRUG HYPERSENSITIVITY [None]
  - HYPERHIDROSIS [None]
  - HYPOTENSION [None]
  - HYPOXIA [None]
  - LETHARGY [None]
